FAERS Safety Report 10451315 (Version 1)
Quarter: 2014Q3

REPORT INFORMATION
  Report Type: Spontaneous
  Country: US (occurrence: US)
  Receive Date: 20140912
  Receipt Date: 20140912
  Transmission Date: 20150326
  Serious: Yes (Death)
  Sender: FDA-Public Use
  Company Number: US-GLAXOSMITHKLINE-A1088929A

PATIENT
  Age: 60 Year
  Sex: Male

DRUGS (1)
  1. COREG CR [Suspect]
     Active Substance: CARVEDILOL PHOSPHATE
     Indication: HYPERTENSION
     Dosage: 10MG UNKNOWN
     Route: 065
     Dates: start: 20130809

REACTIONS (1)
  - Death [Fatal]
